FAERS Safety Report 15452503 (Version 1)
Quarter: 2018Q4

REPORT INFORMATION
  Report Type: Spontaneous
  Country: NO (occurrence: NO)
  Receive Date: 20181001
  Receipt Date: 20181001
  Transmission Date: 20190204
  Serious: No
  Sender: FDA-Public Use
  Company Number: NO-JAZZ-2018-NO-013425

PATIENT

DRUGS (2)
  1. PANDEMRIX [Concomitant]
     Active Substance: INFLUENZA VIRUS VACCINE, SWINE
  2. XYREM [Suspect]
     Active Substance: SODIUM OXYBATE
     Indication: NARCOLEPSY
     Dosage: UNKNOWN DOSE
     Route: 065

REACTIONS (1)
  - Product use issue [Unknown]
